FAERS Safety Report 7283964-0 (Version None)
Quarter: 2011Q1

REPORT INFORMATION
  Report Type: 
  Country: None (occurrence: None)
  Receive Date: 20110131
  Receipt Date: 20101231
  Transmission Date: 20110831
  Serious: Yes (Death)
  Sender: FDA-Public Use
  Company Number: AUR-APL-2011-00042

PATIENT
  Age: 27 Year
  Sex: Male

DRUGS (9)
  1. AMLODIPINE [Suspect]
     Dosage: ORAL
     Route: 048
  2. FUROSEMIDE [Suspect]
     Dosage: ORAL
     Route: 048
  3. HYDROCHLOROTHIAZIDE [Suspect]
     Dosage: ORAL
     Route: 048
  4. IBUPROFEN [Suspect]
     Dosage: ORAL
     Route: 048
  5. CLONAZEPAM [Suspect]
     Dosage: ORAL
     Route: 048
  6. QUETIAPINE [Suspect]
     Dosage: ORAL
     Route: 048
  7. RISPERDONE [Suspect]
     Dosage: ORAL
     Route: 048
  8. DOXAZOSIN [Suspect]
     Dosage: ORAL
     Route: 048
  9. CARBIDOPA + LEVODOPA [Suspect]
     Dosage: ORAL
     Route: 048

REACTIONS (3)
  - TOXICITY TO VARIOUS AGENTS [None]
  - INTENTIONAL DRUG MISUSE [None]
  - COMPLETED SUICIDE [None]
